FAERS Safety Report 17016129 (Version 5)
Quarter: 2020Q2

REPORT INFORMATION
  Report Type: Report from Study
  Country: CO (occurrence: CO)
  Receive Date: 20191111
  Receipt Date: 20200505
  Transmission Date: 20200713
  Serious: Yes (Hospitalization, Other)
  Sender: FDA-Public Use
  Company Number: PHHY2019CO221519

PATIENT
  Age: 26 Year
  Sex: Male
  Weight: 74 kg

DRUGS (4)
  1. TASIGNA [Suspect]
     Active Substance: NILOTINIB
     Dosage: 400 MG, Q12H
     Route: 048
  2. TASIGNA [Suspect]
     Active Substance: NILOTINIB
     Dosage: 800 MG, QD
     Route: 048
  3. TASIGNA [Suspect]
     Active Substance: NILOTINIB
     Indication: CHRONIC MYELOID LEUKAEMIA
     Dosage: 300 MG, Q12H
     Route: 048
     Dates: start: 20141201
  4. TASIGNA [Suspect]
     Active Substance: NILOTINIB
     Dosage: 400 MG, Q12H
     Route: 048

REACTIONS (9)
  - Bone pain [Unknown]
  - Feeling abnormal [Unknown]
  - Fear [Unknown]
  - Immunodeficiency [Unknown]
  - Malaise [Unknown]
  - Chronic myeloid leukaemia recurrent [Unknown]
  - Inappropriate schedule of product administration [Unknown]
  - Headache [Unknown]
  - Platelet count decreased [Unknown]

NARRATIVE: CASE EVENT DATE: 20190914
